FAERS Safety Report 11269371 (Version 1)
Quarter: 2015Q3

REPORT INFORMATION
  Report Type: Spontaneous
  Country: IT (occurrence: IT)
  Receive Date: 20150714
  Receipt Date: 20150714
  Transmission Date: 20151125
  Serious: Yes (Other)
  Sender: FDA-Public Use
  Company Number: IT-TEVA-577435ACC

PATIENT
  Age: 75 Year
  Sex: Female

DRUGS (1)
  1. LOSARTAN POTASSIUM. [Suspect]
     Active Substance: LOSARTAN POTASSIUM
     Indication: HYPERTENSION
     Dosage: 50 MILLIGRAM DAILY; 50 MG DAILY
     Route: 048
     Dates: start: 20060101, end: 20150102

REACTIONS (2)
  - Pain of skin [Recovering/Resolving]
  - Exophthalmos [Recovering/Resolving]

NARRATIVE: CASE EVENT DATE: 20150101
